FAERS Safety Report 18226402 (Version 1)
Quarter: 2020Q3

REPORT INFORMATION
  Report Type: Other
  Country: ES (occurrence: ES)
  Receive Date: 20200903
  Receipt Date: 20200903
  Transmission Date: 20201103
  Serious: Yes (Other)
  Sender: FDA-Public Use
  Company Number: ES-ROCHE-2666811

PATIENT

DRUGS (2)
  1. OSELTAMIVIR [Suspect]
     Active Substance: OSELTAMIVIR
     Indication: PNEUMONIA
     Route: 065
  2. OSELTAMIVIR [Suspect]
     Active Substance: OSELTAMIVIR
     Indication: BACTERIAL INFECTION

REACTIONS (8)
  - Hepatitis acute [Unknown]
  - Confusional state [Unknown]
  - Pleural effusion [Unknown]
  - Acute cardiac event [Unknown]
  - Respiratory distress [Unknown]
  - Septic shock [Unknown]
  - Nosocomial infection [Unknown]
  - Renal failure [Unknown]
